FAERS Safety Report 7388553-5 (Version None)
Quarter: 2011Q2

REPORT INFORMATION
  Report Type: 
  Country: None (occurrence: None)
  Receive Date: 20110401
  Receipt Date: 20110329
  Transmission Date: 20111010
  Serious: Yes (Death)
  Sender: FDA-Public Use
  Company Number: IN-PFIZER INC-2011070216

PATIENT
  Age: 52 Year
  Sex: Male

DRUGS (7)
  1. MORPHINE [Concomitant]
     Dosage: 10 MG, 3X/DAY
  2. SUTENT [Suspect]
     Indication: METASTATIC RENAL CELL CARCINOMA
     Dosage: 50 MG, 1X/DAY, 4 WEEKS ON 2 WEEKS OFF
     Route: 048
  3. DOMPERIDONE/PANTOPRAZOLE [Concomitant]
     Dosage: TWICE DAILY
     Route: 048
  4. VITAMIN B W/ZINC/ [Concomitant]
     Dosage: 1X/DAY
     Route: 048
  5. ONDANSETRON [Concomitant]
     Dosage: 8 MG, 3X/DAY
     Route: 048
  6. FOLVITE [Concomitant]
     Dosage: 5 MG, 1X/DAY
     Route: 048
  7. ALPRAX [Concomitant]
     Dosage: 0.5 MG, BEDTIME

REACTIONS (1)
  - DEATH [None]
